FAERS Safety Report 10011001 (Version 1)
Quarter: 2014Q1

REPORT INFORMATION
  Report Type: Spontaneous
  Country: IE (occurrence: None)
  Receive Date: 20140312
  Receipt Date: 20140312
  Transmission Date: 20141002
  Serious: Yes (Death)
  Sender: FDA-Public Use
  Company Number: BD-2014-0018

PATIENT
  Age: 73 Year
  Sex: Male

DRUGS (3)
  1. DIPHENHYDRAMINE [Suspect]
     Indication: PRODUCT USED FOR UNKNOWN INDICATION
  2. DOXYLAMINE (DOXYLAMINE) [Suspect]
  3. DIAZEPAM (DIAZEPAM) [Suspect]

REACTIONS (3)
  - Toxicity to various agents [None]
  - Completed suicide [None]
  - Incorrect dose administered [None]
